FAERS Safety Report 17802810 (Version 1)
Quarter: 2020Q2

REPORT INFORMATION
  Report Type: Spontaneous
  Country: US (occurrence: US)
  Receive Date: 20200519
  Receipt Date: 20200519
  Transmission Date: 20200714
  Serious: No
  Sender: FDA-Public Use
  Company Number: None

PATIENT
  Age: 26 Year
  Sex: Male

DRUGS (1)
  1. LURASIDONE (LURASIDONE HCL 80MG TAB) [Suspect]
     Active Substance: LURASIDONE HYDROCHLORIDE
     Dates: start: 20190127, end: 20190227

REACTIONS (1)
  - Akathisia [None]

NARRATIVE: CASE EVENT DATE: 20190523
